FAERS Safety Report 7500233-1 (Version None)
Quarter: 2011Q2

REPORT INFORMATION
  Report Type: 
  Country: None (occurrence: None)
  Receive Date: 20110517
  Receipt Date: 20110503
  Transmission Date: 20111010
  Serious: Yes (Hospitalization)
  Sender: FDA-Public Use
  Company Number: AE 2011-172

PATIENT
  Age: 67 Year
  Sex: Female

DRUGS (19)
  1. TEMGESIC [Concomitant]
  2. PASPERTIN [Concomitant]
  3. PRIALT [Suspect]
     Indication: PAIN
     Dosage: 0.05-0.075 UG/HR
     Dates: start: 20090921
  4. AKTIFFERIN [Concomitant]
  5. PREGABALIN [Concomitant]
  6. BUPRENORPHINE [Concomitant]
  7. NOVOMIX [Concomitant]
  8. MOVIPREP [Concomitant]
  9. DULCOLAX [Concomitant]
  10. PANTOPRAZOLE SODIUM [Concomitant]
  11. LASIX [Concomitant]
  12. CLONIDINE [Suspect]
     Indication: PAIN
     Dosage: 4.24 UG/HR
     Dates: start: 20101104
  13. GLUCOPHAGE [Concomitant]
  14. OLMESARTAN/AMLODIPINE [Concomitant]
  15. ROHYPNOL [Concomitant]
  16. ACETYLCYSTEINE [Concomitant]
  17. THROMBOASPILETS [Concomitant]
  18. NOMEXOR [Concomitant]
  19. PROSPAN [Concomitant]

REACTIONS (4)
  - GENERAL PHYSICAL HEALTH DETERIORATION [None]
  - URINARY TRACT INFECTION [None]
  - FATIGUE [None]
  - PYREXIA [None]
